FAERS Safety Report 25322772 (Version 2)
Quarter: 2025Q2

REPORT INFORMATION
  Report Type: Report from Study
  Country: AR (occurrence: AR)
  Receive Date: 20250516
  Receipt Date: 20250609
  Transmission Date: 20250716
  Serious: Yes (Life-Threatening, Hospitalization, Other)
  Sender: AMGEN
  Company Number: AR-AMGEN-ARGSL2025050481

PATIENT
  Age: 61 Year
  Sex: Male

DRUGS (1)
  1. VECTIBIX [Suspect]
     Active Substance: PANITUMUMAB
     Indication: Colorectal cancer
     Route: 065
     Dates: start: 20240926

REACTIONS (13)
  - Urinary tract infection [Unknown]
  - Neoplasm [Unknown]
  - Device related infection [Unknown]
  - Ileostomy [Unknown]
  - Pulmonary embolism [Unknown]
  - Bladder operation [Unknown]
  - Pyrexia [Unknown]
  - Hypotension [Unknown]
  - Dehydration [Unknown]
  - Rash [Unknown]
  - Asthenia [Unknown]
  - Acne [Unknown]
  - Complication associated with device [Unknown]

NARRATIVE: CASE EVENT DATE: 20250101
